FAERS Safety Report 7799250-6 (Version None)
Quarter: 2011Q4

REPORT INFORMATION
  Report Type: 
  Country: None (occurrence: None)
  Receive Date: 20111006
  Receipt Date: 20101007
  Transmission Date: 20120403
  Serious: No
  Sender: FDA-Public Use
  Company Number: US-GLAXOSMITHKLINE-A0885438A

PATIENT
  Age: 39 Year
  Sex: Female

DRUGS (2)
  1. NO CONCURRENT MEDICATION [Concomitant]
  2. DUAC [Suspect]
     Indication: ACNE
     Dosage: 1APP SINGLE DOSE
     Route: 061
     Dates: start: 20100911, end: 20100911

REACTIONS (1)
  - VULVOVAGINAL MYCOTIC INFECTION [None]
